FAERS Safety Report 8506447-6 (Version None)
Quarter: 2012Q3

REPORT INFORMATION
  Report Type: 
  Country: None (occurrence: None)
  Receive Date: 20120712
  Receipt Date: 20120710
  Transmission Date: 20120928
  Serious: Yes (Other)
  Sender: FDA-Public Use
  Company Number: FR-BMSGILMSD-2012-0055980

PATIENT
  Sex: Male

DRUGS (1)
  1. ATRIPLA [Suspect]
     Indication: HIV INFECTION
     Dosage: 1 DF, UNK
     Route: 048
     Dates: start: 20120202, end: 20120601

REACTIONS (4)
  - DECREASED APPETITE [None]
  - HEPATOMEGALY [None]
  - WEIGHT DECREASED [None]
  - DIARRHOEA [None]
